FAERS Safety Report 8278086-6 (Version None)
Quarter: 2012Q2

REPORT INFORMATION
  Report Type: 
  Country: None (occurrence: None)
  Receive Date: 20120412
  Receipt Date: 20120110
  Transmission Date: 20120825
  Serious: No
  Sender: FDA-Public Use
  Company Number: US-ASTRAZENECA-2012SE02303

PATIENT
  Age: 60 Year
  Sex: Female
  Weight: 61.7 kg

DRUGS (13)
  1. SYNTHROID [Concomitant]
  2. POTASSIUM CL [Concomitant]
  3. GABAPENTIN [Concomitant]
  4. NEXIUM [Suspect]
     Route: 048
  5. AMLODIPINE BESYLATE [Concomitant]
     Indication: BLOOD PRESSURE ABNORMAL
  6. LEZETIRACECAM [Concomitant]
  7. NEXIUM [Suspect]
     Indication: GASTROOESOPHAGEAL REFLUX DISEASE
     Dosage: UNKNOWN DOSE, ONCE DAILY
     Route: 048
  8. PAROXETINE HCL [Concomitant]
  9. ATENOLOL [Concomitant]
     Indication: BLOOD PRESSURE ABNORMAL
  10. DENAZEPRIL HCL [Concomitant]
     Indication: BLOOD PRESSURE ABNORMAL
  11. MULTI-VITAMINS [Concomitant]
  12. PREZALITE [Concomitant]
  13. ASPIRIN [Concomitant]

REACTIONS (2)
  - OFF LABEL USE [None]
  - DYSPHAGIA [None]
